FAERS Safety Report 13031056 (Version 1)
Quarter: 2016Q4

REPORT INFORMATION
  Report Type: Spontaneous
  Country: FR (occurrence: FR)
  Receive Date: 20161215
  Receipt Date: 20161215
  Transmission Date: 20170207
  Serious: Yes (Hospitalization)
  Sender: FDA-Public Use
  Company Number: FR-JNJFOC-20161213187

PATIENT
  Age: 50 Year
  Sex: Female

DRUGS (3)
  1. SOLIRIS [Suspect]
     Active Substance: ECULIZUMAB
     Indication: MAJOR DEPRESSION
     Route: 042
     Dates: start: 201406
  2. XARELTO [Suspect]
     Active Substance: RIVAROXABAN
     Indication: THROMBOCYTOPENIA
     Route: 048
  3. ARANESP [Suspect]
     Active Substance: DARBEPOETIN ALFA
     Indication: HAEMOLYTIC ANAEMIA
     Route: 065
     Dates: start: 20150125

REACTIONS (1)
  - Myocardial fibrosis [Not Recovered/Not Resolved]

NARRATIVE: CASE EVENT DATE: 20161121
